FAERS Safety Report 7094418-9 (Version None)
Quarter: 2010Q4

REPORT INFORMATION
  Report Type: 
  Country: None (occurrence: None)
  Receive Date: 20101110
  Receipt Date: 20101105
  Transmission Date: 20110411
  Serious: Yes (Other)
  Sender: FDA-Public Use
  Company Number: A0891301A

PATIENT
  Sex: Male

DRUGS (4)
  1. ARZERRA [Suspect]
     Dosage: 2000MG WEEKLY
     Route: 042
     Dates: start: 20101025
  2. CORTICOSTEROID [Concomitant]
  3. ANTIHISTAMINE [Concomitant]
  4. TYLENOL [Concomitant]

REACTIONS (1)
  - LYMPHADENOPATHY [None]
